FAERS Safety Report 7707664-5 (Version None)
Quarter: 2011Q3

REPORT INFORMATION
  Report Type: 
  Country: None (occurrence: None)
  Receive Date: 20110824
  Receipt Date: 20110817
  Transmission Date: 20111222
  Serious: Yes (Other)
  Sender: FDA-Public Use
  Company Number: PHHY2011TW74964

PATIENT
  Age: 34 Year
  Sex: Female

DRUGS (2)
  1. ZOLPIDEM [Suspect]
     Indication: ADJUSTMENT DISORDER WITH DEPRESSED MOOD
     Dosage: 10 MG, UNK
     Route: 048
  2. ZOLPIDEM [Suspect]
     Dosage: 100 TO 250 MG, UNK
     Route: 048

REACTIONS (3)
  - DRUG WITHDRAWAL SYNDROME [None]
  - DELIRIUM [None]
  - DRUG DEPENDENCE [None]
